FAERS Safety Report 24939106 (Version 1)
Quarter: 2025Q1

REPORT INFORMATION
  Report Type: Spontaneous
  Country: DE (occurrence: DE)
  Receive Date: 20250206
  Receipt Date: 20250206
  Transmission Date: 20250408
  Serious: Yes (Hospitalization)
  Sender: FRESENIUS KABI
  Company Number: DE-FreseniusKabi-FK202501799

PATIENT
  Age: 68 Year
  Sex: Male
  Weight: 110 kg

DRUGS (1)
  1. OXALIPLATIN [Suspect]
     Active Substance: OXALIPLATIN
     Indication: Product used for unknown indication
     Route: 042

REACTIONS (10)
  - Headache [Unknown]
  - Nausea [Unknown]
  - Vomiting [Unknown]
  - Dyspnoea [Unknown]
  - Abdominal pain lower [Unknown]
  - Dysarthria [Unknown]
  - Tongue discomfort [Unknown]
  - Hypotension [Unknown]
  - Pallor [Unknown]
  - Heart rate decreased [Unknown]

NARRATIVE: CASE EVENT DATE: 20250128
